FAERS Safety Report 6403606-3 (Version None)
Quarter: 2009Q4

REPORT INFORMATION
  Report Type: 
  Country: None (occurrence: None)
  Receive Date: 20091013
  Receipt Date: 20090928
  Transmission Date: 20100525
  Serious: Yes (Disabling)
  Sender: FDA-Public Use
  Company Number: 007668

PATIENT
  Sex: Male

DRUGS (1)
  1. PLETAL [Suspect]

REACTIONS (2)
  - BLINDNESS UNILATERAL [None]
  - RETINAL HAEMORRHAGE [None]
